FAERS Safety Report 9839767 (Version 2)
Quarter: 2014Q2

REPORT INFORMATION
  Report Type: Spontaneous
  Country: GB (occurrence: GB)
  Receive Date: 20140124
  Receipt Date: 20140417
  Transmission Date: 20141212
  Serious: Yes (Other)
  Sender: FDA-Public Use
  Company Number: GB-DRREDDYS-GER/UKI/14/0037339

PATIENT
  Age: 45 Year
  Sex: Male
  Weight: 101.6 kg

DRUGS (1)
  1. CIPROFLOXACIN [Suspect]
     Indication: PROSTATE INFECTION
     Route: 048
     Dates: start: 20130918, end: 20130925

REACTIONS (3)
  - Penile pain [Recovered/Resolved]
  - Phimosis [Recovered/Resolved]
  - Dysuria [Unknown]
